FAERS Safety Report 7201683-3 (Version None)
Quarter: 2010Q4

REPORT INFORMATION
  Report Type: 
  Country: None (occurrence: None)
  Receive Date: 20101229
  Receipt Date: 20101221
  Transmission Date: 20110411
  Serious: Yes (Other)
  Sender: FDA-Public Use
  Company Number: DE-PFIZER INC-2010177220

PATIENT
  Sex: Female

DRUGS (1)
  1. REVATIO [Suspect]
     Dosage: 1 DF(TABLET), 2X/DAY

REACTIONS (2)
  - DRUG INEFFECTIVE [None]
  - VISUAL IMPAIRMENT [None]
